FAERS Safety Report 6756655-X (Version None)
Quarter: 2010Q2

REPORT INFORMATION
  Report Type: 
  Country: None (occurrence: None)
  Receive Date: 20100604
  Receipt Date: 20100531
  Transmission Date: 20101027
  Serious: Yes (Hospitalization)
  Sender: FDA-Public Use
  Company Number: FR-MERCK-1005FRA00112

PATIENT
  Age: 63 Year
  Sex: Male

DRUGS (2)
  1. PRIMAXIN [Suspect]
     Indication: PSEUDOMONAS INFECTION
     Route: 042
     Dates: start: 20100420, end: 20100422
  2. AMIKACIN SULFATE [Suspect]
     Indication: PSEUDOMONAS INFECTION
     Route: 042
     Dates: start: 20100420, end: 20100422

REACTIONS (3)
  - PRURITUS [None]
  - PYREXIA [None]
  - TOXIC SKIN ERUPTION [None]
